FAERS Safety Report 16239666 (Version 1)
Quarter: 2019Q2

REPORT INFORMATION
  Report Type: Spontaneous
  Country: FR (occurrence: FR)
  Receive Date: 20190425
  Receipt Date: 20190425
  Transmission Date: 20190711
  Serious: Yes (Other)
  Sender: FDA-Public Use
  Company Number: FR-INDIVIOR LIMITED-INDV-119121-2019

PATIENT
  Age: 23 Year
  Sex: Female

DRUGS (4)
  1. RISPERIDONE. [Suspect]
     Active Substance: RISPERIDONE
     Indication: SUICIDE ATTEMPT
     Dosage: 2 MILLIGRAM (2 CP OF 1 MG)
     Route: 048
     Dates: start: 20190324, end: 20190324
  2. BUPRENORPHINE 2 MG [Suspect]
     Active Substance: BUPRENORPHINE
     Indication: SUICIDE ATTEMPT
     Dosage: 2 MILLIGRAM (1 CP OF 2 MG)
     Route: 048
     Dates: start: 20190324, end: 20190324
  3. SERESTA [Suspect]
     Active Substance: OXAZEPAM
     Indication: SUICIDE ATTEMPT
     Dosage: 1 DOSAGE FORM (50MG)
     Route: 048
     Dates: start: 20190324, end: 20190324
  4. ALPRAZOLAM. [Suspect]
     Active Substance: ALPRAZOLAM
     Indication: SUICIDE ATTEMPT
     Dosage: 7.5 MILLIGRAM (15 CP OF 0.5 MG)
     Route: 048
     Dates: start: 20190324, end: 20190324

REACTIONS (2)
  - Somnolence [Recovered/Resolved]
  - Suicide attempt [Recovered/Resolved]

NARRATIVE: CASE EVENT DATE: 20190324
